FAERS Safety Report 11163771 (Version 1)
Quarter: 2015Q2

REPORT INFORMATION
  Report Type: Spontaneous
  Country: US (occurrence: None)
  Receive Date: 20150603
  Receipt Date: 20150603
  Transmission Date: 20150821
  Serious: No
  Sender: FDA-Public Use
  Company Number: None

PATIENT
  Age: 71 Year
  Sex: Male

DRUGS (18)
  1. SYMBICORT [Concomitant]
     Active Substance: BUDESONIDE\FORMOTEROL FUMARATE DIHYDRATE
  2. ASPIRIN. [Concomitant]
     Active Substance: ASPIRIN
  3. IRBESARTAN. [Concomitant]
     Active Substance: IRBESARTAN
  4. XANAX [Concomitant]
     Active Substance: ALPRAZOLAM
  5. ZETIA [Concomitant]
     Active Substance: EZETIMIBE
  6. ALIGN [Concomitant]
     Active Substance: BIFIDOBACTERIUM LONGUM SUBSP. INFANTIS
  7. AZELASTINE HCL [Suspect]
     Active Substance: AZELASTINE HYDROCHLORIDE
     Indication: NASAL CONGESTION
     Dosage: 2 PUFFS EACH NOSTRIL BID
     Route: 045
     Dates: start: 20150529, end: 20150602
  8. METFORMIN [Concomitant]
     Active Substance: METFORMIN HYDROCHLORIDE
  9. NEXIUM [Concomitant]
     Active Substance: ESOMEPRAZOLE MAGNESIUM
  10. SINGULAIR [Concomitant]
     Active Substance: MONTELUKAST SODIUM
  11. MUCINEX [Concomitant]
     Active Substance: GUAIFENESIN
  12. ALLOPURANOL [Concomitant]
  13. VITAMIN D3 [Concomitant]
     Active Substance: CHOLECALCIFEROL
  14. ZANTAC [Concomitant]
     Active Substance: RANITIDINE HYDROCHLORIDE
  15. MOBIC [Concomitant]
     Active Substance: MELOXICAM
  16. RAPAFLO [Concomitant]
     Active Substance: SILODOSIN
  17. TRICOR [Concomitant]
     Active Substance: FENOFIBRATE
  18. ZYRTEC [Concomitant]
     Active Substance: CETIRIZINE HYDROCHLORIDE

REACTIONS (4)
  - Product substitution issue [None]
  - Poor quality sleep [None]
  - Drug ineffective [None]
  - Product quality issue [None]

NARRATIVE: CASE EVENT DATE: 20150529
